FAERS Safety Report 7595766 (Version 2)
Quarter: 2013Q3

REPORT INFORMATION
  Report Type: Report from Study
  Country: US (occurrence: US)
  Receive Date: 20100920
  Receipt Date: 20130823
  Transmission Date: 20140515
  Serious: No
  Sender: FDA-Public Use
  Company Number: US-ASTRAZENECA-2010SE15006

PATIENT
  Age: 51 Year
  Sex: Female
  Weight: 112 kg

DRUGS (6)
  1. SEROQUEL [Suspect]
     Indication: SCHIZOPHRENIA
     Route: 048
  2. SEROQUEL [Suspect]
     Indication: BIPOLAR DISORDER
     Route: 048
  3. SEROQUEL [Suspect]
     Indication: SCHIZOPHRENIA
     Route: 048
  4. SEROQUEL [Suspect]
     Indication: BIPOLAR DISORDER
     Route: 048
  5. DIABETES MEDICATION [Concomitant]
     Indication: DIABETES MELLITUS
  6. OTHER MEDICATIONS [Concomitant]

REACTIONS (5)
  - Female orgasmic disorder [Unknown]
  - Gastroenteritis viral [Unknown]
  - Glycosylated haemoglobin increased [Unknown]
  - Diabetes mellitus [Unknown]
  - Blood glucose increased [Unknown]
